FAERS Safety Report 5286135-2 (Version None)
Quarter: 2007Q2

REPORT INFORMATION
  Report Type: 
  Country: None (occurrence: None)
  Receive Date: 20070404
  Receipt Date: 20070326
  Transmission Date: 20071010
  Serious: Yes (Other)
  Sender: FDA-Public Use
  Company Number: IN-AVENTIS-200712726GDDC

PATIENT
  Age: 21 Year
  Sex: Male

DRUGS (4)
  1. RIFAMPICIN [Suspect]
     Dosage: DOSE: UNK
  2. PYRAZINAMIDE [Suspect]
     Dosage: DOSE: UNK
  3. ISONIAZID [Suspect]
     Dosage: DOSE: UNK
  4. ETHAMBUTOL HYDROCHLORIDE [Suspect]
     Dosage: DOSE: UNK

REACTIONS (1)
  - TUBERCULOMA OF CENTRAL NERVOUS SYSTEM [None]
